FAERS Safety Report 7875259-9 (Version None)
Quarter: 2011Q4

REPORT INFORMATION
  Report Type: 
  Country: None (occurrence: None)
  Receive Date: 20111031
  Receipt Date: 20111020
  Transmission Date: 20120403
  Serious: Yes (Life-Threatening, Hospitalization)
  Sender: FDA-Public Use
  Company Number: FR-PFIZER INC-2011260529

PATIENT
  Age: 53 Year
  Sex: Female

DRUGS (16)
  1. DELURSAN [Concomitant]
  2. VOLTAREN [Concomitant]
  3. ALDALIX [Concomitant]
  4. ASPIRIN [Concomitant]
  5. STABLON [Concomitant]
  6. NOCTAMID [Concomitant]
  7. PANOS [Concomitant]
  8. PROPRANOLOL [Suspect]
     Indication: HYPERTENSION
     Dosage: 160 MG, 1X/DAY
     Route: 048
  9. ATARAX [Concomitant]
  10. KAPANOL [Concomitant]
  11. STRESAM [Concomitant]
  12. LERCANIDIPINE [Concomitant]
  13. FLUOXETINE [Concomitant]
  14. OMEPRAZOLE [Concomitant]
  15. GLYBURIDE [Suspect]
     Indication: TYPE 2 DIABETES MELLITUS
     Dosage: 5 MEQ, 3X/DAY
     Route: 048
     Dates: end: 20110513
  16. GLUCOPHAGE [Suspect]
     Indication: TYPE 2 DIABETES MELLITUS
     Dosage: 1 G, 2X/DAY
     Route: 048
     Dates: end: 20110513

REACTIONS (2)
  - HYPOGLYCAEMIA [None]
  - COMA [None]
